FAERS Safety Report 4359465-6 (Version None)
Quarter: 2004Q2

REPORT INFORMATION
  Report Type: 
  Country: None (occurrence: None)
  Receive Date: 20040512
  Receipt Date: 20040430
  Transmission Date: 20050107
  Serious: Yes (Other)
  Sender: FDA-Public Use
  Company Number: US-JNJFOC-20040500432

PATIENT
  Age: 18 Year
  Sex: Female
  Weight: 97.977 kg

DRUGS (1)
  1. NECON 7/7/7 (ETHINYLESTRADIOL/NORETHINDRONE) TABLETS [Suspect]
     Dosage: 1 DOSE(S), 1 IN 1 DAY, ORAL
     Route: 048
     Dates: start: 20040418, end: 20040428

REACTIONS (6)
  - COMA [None]
  - CONVULSION [None]
  - PRURITUS [None]
  - RASH ERYTHEMATOUS [None]
  - THROAT TIGHTNESS [None]
  - URTICARIA [None]
